FAERS Safety Report 24094442 (Version 1)
Quarter: 2024Q3

REPORT INFORMATION
  Report Type: Spontaneous
  Country: JP (occurrence: JP)
  Receive Date: 20240716
  Receipt Date: 20240716
  Transmission Date: 20241017
  Serious: Yes (Other)
  Sender: ROCHE
  Company Number: JP-CHUGAI-2024023377

PATIENT
  Age: 3 Year
  Sex: Female
  Weight: 17.6 kg

DRUGS (4)
  1. ACTEMRA [Suspect]
     Active Substance: TOCILIZUMAB
     Indication: Cytokine release syndrome
     Dosage: UNK
     Route: 065
  2. KYMRIAH [Suspect]
     Active Substance: TISAGENLECLEUCEL
     Indication: Acute lymphocytic leukaemia
     Dosage: UNK, FULL (CONTINUED ON ADDITIONAL INFORMATION PAGE)
     Route: 042
     Dates: start: 20210826
  3. FLUDARABINE PHOSPHATE [Concomitant]
     Active Substance: FLUDARABINE PHOSPHATE
     Indication: Lymphodepletion
     Dosage: 120 MILLIGRAM/SQ. METER
     Route: 065
     Dates: start: 20210820
  4. CYCLOPHOSPHAMIDE [Concomitant]
     Active Substance: CYCLOPHOSPHAMIDE
     Indication: Lymphodepletion
     Dosage: 120 MILLIGRAM/SQ. METER
     Route: 065
     Dates: start: 20210820

REACTIONS (6)
  - Lymphocyte count decreased [Unknown]
  - White blood cell count decreased [Unknown]
  - Alpha haemolytic streptococcal infection [Unknown]
  - Neutrophil count decreased [Unknown]
  - Acute graft versus host disease [Unknown]
  - Acute lymphocytic leukaemia recurrent [Unknown]

NARRATIVE: CASE EVENT DATE: 20220108
